FAERS Safety Report 9010989 (Version 1)
Quarter: 2013Q1

REPORT INFORMATION
  Report Type: Spontaneous
  Country: US (occurrence: US)
  Receive Date: 20130109
  Receipt Date: 20130109
  Transmission Date: 20140127
  Serious: No
  Sender: FDA-Public Use
  Company Number: US-ASTRAZENECA-2012SE96020

PATIENT
  Sex: Female

DRUGS (5)
  1. SEROQUEL [Suspect]
     Route: 048
  2. VISTARIL [Concomitant]
  3. ABILIFY [Concomitant]
  4. LATUDA [Concomitant]
  5. VIIBRYD [Concomitant]

REACTIONS (3)
  - Bipolar disorder [Unknown]
  - Anxiety disorder [Unknown]
  - Drug hypersensitivity [Unknown]
